FAERS Safety Report 13171199 (Version 1)
Quarter: 2017Q1

REPORT INFORMATION
  Report Type: Spontaneous
  Country: FR (occurrence: FR)
  Receive Date: 20170201
  Receipt Date: 20170201
  Transmission Date: 20170428
  Serious: Yes (Death, Hospitalization, Other)
  Sender: FDA-Public Use
  Company Number: PHHY2017FR011718

PATIENT
  Age: 70 Year
  Sex: Female
  Weight: 58 kg

DRUGS (2)
  1. VOTRIENT [Suspect]
     Active Substance: PAZOPANIB HYDROCHLORIDE
     Indication: FIBROSARCOMA METASTATIC
     Dosage: 800 MG, UNK
     Route: 048
     Dates: start: 20160720, end: 20160811
  2. LEXOMIL [Concomitant]
     Active Substance: BROMAZEPAM
     Indication: PRODUCT USED FOR UNKNOWN INDICATION
     Dosage: 3 MG, UNK
     Route: 048
     Dates: start: 201603

REACTIONS (13)
  - Ejection fraction decreased [Fatal]
  - Hepatic function abnormal [Unknown]
  - Fatigue [Unknown]
  - Cardiac failure congestive [Fatal]
  - Cardiac failure acute [Fatal]
  - Palpitations [Fatal]
  - Hyperlactacidaemia [Unknown]
  - Sinus tachycardia [Unknown]
  - Asthenia [Fatal]
  - Cardiogenic shock [Fatal]
  - Cardiotoxicity [Fatal]
  - Atrial fibrillation [Unknown]
  - Dyspnoea [Fatal]

NARRATIVE: CASE EVENT DATE: 20160811
